FAERS Safety Report 23898640 (Version 1)
Quarter: 2024Q2

REPORT INFORMATION
  Report Type: Spontaneous
  Country: FR (occurrence: FR)
  Receive Date: 20240525
  Receipt Date: 20240525
  Transmission Date: 20240716
  Serious: Yes (Hospitalization, Other)
  Sender: FDA-Public Use
  Company Number: FR-CELLTRION INC.-2024FR011825

PATIENT

DRUGS (5)
  1. INFLIXIMAB [Suspect]
     Active Substance: INFLIXIMAB
     Indication: Enterocolitis haemorrhagic
     Dosage: 10 MG/KG, EVERY 1 MONTH
     Route: 042
     Dates: start: 20201208
  2. AZATHIOPRINE [Suspect]
     Active Substance: AZATHIOPRINE
     Indication: Enterocolitis haemorrhagic
     Dosage: 200 MG, EVERY 1 DAY
     Dates: start: 202012, end: 20211223
  3. RAMIPRIL [Concomitant]
     Active Substance: RAMIPRIL
  4. HUMALOG [Concomitant]
     Active Substance: INSULIN LISPRO
  5. LANTUS [Concomitant]
     Active Substance: INSULIN GLARGINE

REACTIONS (4)
  - Jaundice cholestatic [Recovered/Resolved]
  - Hepatic cytolysis [Recovered/Resolved]
  - Pancytopenia [Recovered/Resolved]
  - Intentional product use issue [Unknown]

NARRATIVE: CASE EVENT DATE: 20210601
